FAERS Safety Report 10027841 (Version 1)
Quarter: 2014Q1

REPORT INFORMATION
  Report Type: Spontaneous
  Country: GB (occurrence: GB)
  Receive Date: 20140321
  Receipt Date: 20140321
  Transmission Date: 20141002
  Serious: Yes (Other)
  Sender: FDA-Public Use
  Company Number: GB-WATSON-2014-05045

PATIENT
  Age: 21 Year
  Sex: Male
  Weight: 80 kg

DRUGS (2)
  1. MIRTAZAPINE (UNKNOWN) [Suspect]
     Indication: DEPRESSION
     Dosage: 30 MG, DAILY (15 MG ONCE DAILY INCREASING TO 30MG ONCE DAILY AFTER 2 WEEKS)
     Route: 048
     Dates: start: 201401
  2. MIRTAZAPINE (UNKNOWN) [Suspect]
     Dosage: 15 MG, DAILY (15 MG ONCE DAILY INCREASING TO 30MG ONCE DAILY AFTER 2 WEEKS)
     Route: 048
     Dates: start: 20131223

REACTIONS (2)
  - Convulsion [Recovered/Resolved]
  - Altered state of consciousness [Recovered/Resolved]
